FAERS Safety Report 20247257 (Version 1)
Quarter: 2021Q4

REPORT INFORMATION
  Report Type: Spontaneous
  Country: DE (occurrence: DE)
  Receive Date: 20211229
  Receipt Date: 20211229
  Transmission Date: 20220303
  Serious: Yes (Hospitalization, Other)
  Sender: FDA-Public Use
  Company Number: DE-002147023-NVSC2020DE360533

PATIENT
  Sex: Female
  Weight: 100 kg

DRUGS (48)
  1. MIRTAZAPINE [Suspect]
     Active Substance: MIRTAZAPINE
     Indication: Product used for unknown indication
     Dosage: UNK
     Route: 065
  2. DULOXETINE [Suspect]
     Active Substance: DULOXETINE
     Indication: Pain
     Dosage: 60 MG, QD (ONCE DAILY, EVENING)
     Route: 065
  3. DULOXETINE [Suspect]
     Active Substance: DULOXETINE
     Indication: Fibromyalgia
  4. NALOXONE HYDROCHLORIDE\TILIDINE HYDROCHLORIDE [Suspect]
     Active Substance: NALOXONE HYDROCHLORIDE\TILIDINE HYDROCHLORIDE
     Indication: Product used for unknown indication
     Dosage: UNK
     Route: 065
  5. RANITIDINE HYDROCHLORIDE [Suspect]
     Active Substance: RANITIDINE HYDROCHLORIDE
     Indication: Product used for unknown indication
     Dosage: 300 MG, QD
     Route: 065
     Dates: start: 2015
  6. DOXEPIN [Suspect]
     Active Substance: DOXEPIN
     Indication: Product used for unknown indication
     Dosage: UNK
     Route: 065
  7. RANITIDINE [Suspect]
     Active Substance: RANITIDINE
     Indication: Product used for unknown indication
     Dosage: UNK
     Route: 065
  8. RANITIDINE HYDROCHLORIDE [Suspect]
     Active Substance: RANITIDINE HYDROCHLORIDE
     Indication: Reflux gastritis
     Dosage: 300 MG
     Route: 065
     Dates: start: 201710, end: 201802
  9. RANITIDINE HYDROCHLORIDE [Suspect]
     Active Substance: RANITIDINE HYDROCHLORIDE
     Dosage: 300 MG
     Route: 065
     Dates: start: 1999, end: 202001
  10. RANITIDINE HYDROCHLORIDE [Suspect]
     Active Substance: RANITIDINE HYDROCHLORIDE
     Dosage: 300 MG
     Route: 065
     Dates: start: 201510, end: 201703
  11. RANITIDINE HYDROCHLORIDE [Suspect]
     Active Substance: RANITIDINE HYDROCHLORIDE
     Dosage: 300 MG
     Route: 065
     Dates: start: 201806
  12. TRIMIPRAMIN AL [TRIMIPRAMINE MALEATE] [Concomitant]
     Indication: Pain
     Dosage: UNK (1-5 DROPS AT NIGHT)
     Route: 065
  13. DIAZEPAM [Concomitant]
     Active Substance: DIAZEPAM
     Indication: Product used for unknown indication
     Dosage: UNK
     Route: 065
  14. TETRAZEPAM [Concomitant]
     Active Substance: TETRAZEPAM
     Indication: Product used for unknown indication
     Dosage: 1 DF, QD
     Route: 065
  15. TETRAZEPAM [Concomitant]
     Active Substance: TETRAZEPAM
     Dosage: 1 DF, QD
  16. CELEBREX [Concomitant]
     Active Substance: CELECOXIB
     Indication: Product used for unknown indication
     Dosage: 200 MG, TID, THREE TIMES DAILY
     Route: 065
  17. LUVASED [ETHANOL;HUMULUS LUPULUS;VALERIANA OFFICINALIS ROOT] [Concomitant]
     Indication: Product used for unknown indication
     Dosage: UNK
     Route: 065
  18. TRAMADOL HYDROCHLORIDE [Concomitant]
     Active Substance: TRAMADOL HYDROCHLORIDE
     Indication: Product used for unknown indication
     Dosage: UNK UNK, BID TWICE (MORNING, EVENING)
     Route: 065
  19. HYDROMORPHONE HYDROCHLORIDE [Concomitant]
     Active Substance: HYDROMORPHONE HYDROCHLORIDE
     Indication: Pain
     Dosage: 8 MG, QD
     Route: 065
  20. HYDROMORPHONE HYDROCHLORIDE [Concomitant]
     Active Substance: HYDROMORPHONE HYDROCHLORIDE
     Indication: Fibromyalgia
  21. CEFUROXIME [Concomitant]
     Active Substance: CEFUROXIME
     Indication: Paranasal sinus inflammation
     Dosage: 1 X 500, TWICE, MORNING, EVENING
     Route: 065
     Dates: start: 201103
  22. RANITIDINE HYDROCHLORIDE [Concomitant]
     Active Substance: RANITIDINE HYDROCHLORIDE
     Indication: Product used for unknown indication
     Dosage: 300 MG
     Route: 065
     Dates: start: 201703, end: 201710
  23. PANTOPRAZOLE AN [Concomitant]
     Indication: Product used for unknown indication
     Route: 065
  24. MAGNESIUM [Concomitant]
     Active Substance: MAGNESIUM
     Indication: Product used for unknown indication
     Dosage: 1 DF, QD (1 X 300, ONCE DAILY, MORNING)
     Route: 065
  25. TREVILOR RETARD [Concomitant]
     Active Substance: VENLAFAXINE HYDROCHLORIDE
     Indication: Product used for unknown indication
     Dosage: 1 DF, QD (1X37.5, ONCE DAILY, MORNING)
     Route: 065
  26. ENOXAPARIN SODIUM [Concomitant]
     Active Substance: ENOXAPARIN SODIUM
     Indication: Product used for unknown indication
     Dosage: 40 MG, QD
     Route: 065
     Dates: start: 201107
  27. RAMIPRIL [Concomitant]
     Active Substance: RAMIPRIL
     Indication: Product used for unknown indication
     Dosage: 2.5 MG, QD (1 X 2.5MG, ONCE DAILY, MORNING)
     Route: 065
  28. ASPIRIN [Concomitant]
     Active Substance: ASPIRIN
     Indication: Product used for unknown indication
     Dosage: UNK
     Route: 065
  29. AMITRIPTYLINE [Concomitant]
     Active Substance: AMITRIPTYLINE
     Indication: Product used for unknown indication
     Dosage: 0.25 X 100MG, ONCE DAILY, MORNING
     Route: 065
  30. TRAMADOL ABZ [Concomitant]
     Indication: Pain
     Dosage: 1 DF, QD
     Route: 065
     Dates: start: 201310
  31. PREGABALIN [Concomitant]
     Active Substance: PREGABALIN
     Indication: Product used for unknown indication
     Dosage: 50 MG, QD (1 X 50MG, ONCE DAILY, MORNING)
     Route: 065
  32. CERTOPARIN SODIUM [Concomitant]
     Active Substance: CERTOPARIN SODIUM
     Indication: Product used for unknown indication
     Dosage: UNK, QD, ONCE DAILY (EVENING)
     Route: 065
     Dates: start: 201109
  33. PANTOZOL [ERYTHROMYCIN ETHYLSUCCINATE;SULFAFURAZOLE] [Concomitant]
     Indication: Product used for unknown indication
     Dosage: 20 MG, QD (1 X 20MG, ONCE DAILY, MORNING)
     Route: 065
  34. IBUPROFEN [Concomitant]
     Active Substance: IBUPROFEN
     Indication: Product used for unknown indication
     Dosage: 400 MG, QID (FOUR TIMES DAILY)
     Route: 065
  35. IBUPROFEN [Concomitant]
     Active Substance: IBUPROFEN
     Dosage: 1800 MG, QD
     Route: 065
  36. ACETAMINOPHEN\CAFFEINE\PROPYPHENAZONE [Concomitant]
     Active Substance: ACETAMINOPHEN\CAFFEINE\PROPYPHENAZONE
     Indication: Surgery
     Dosage: 2 X 500, FOUR TIMES DAILYUNK
     Route: 065
     Dates: start: 201109, end: 201109
  37. CEFUROXIM ABR [Concomitant]
     Indication: Prophylaxis
     Dosage: 1.5 MG, TID
     Route: 065
     Dates: start: 20110209, end: 20110709
  38. PROCHLORPERAZINE [Concomitant]
     Active Substance: PROCHLORPERAZINE
     Indication: Arthralgia
     Dosage: UNK (1 X 40 DROPS, FOUR TIMES DAILY)
     Route: 065
  39. BETAMETHASONE DIPROPIONATE\CLOTRIMAZOLE [Concomitant]
     Active Substance: BETAMETHASONE DIPROPIONATE\CLOTRIMAZOLE
     Indication: Product used for unknown indication
     Dosage: UNK
     Route: 065
  40. BLACK COHOSH [Concomitant]
     Active Substance: BLACK COHOSH
     Indication: Product used for unknown indication
     Dosage: UNK
     Route: 065
  41. OMEBETA [Concomitant]
     Indication: Product used for unknown indication
     Dosage: 20 MG, QD (1 X 20MG, ONCE DAILY, MORNING)
     Route: 065
  42. OMEBETA [Concomitant]
     Dosage: 40 MG, QD (1 X 40MG, ONCE DAILY, MORNING)
     Route: 065
  43. TILIDINE HYDROCHLORIDE [Concomitant]
     Active Substance: TILIDINE HYDROCHLORIDE
     Indication: Analgesic therapy
     Dosage: 1 X 100/8, TWICE, MORNING, EVENING
     Route: 058
  44. TRAMADOL [Concomitant]
     Active Substance: TRAMADOL
     Indication: Product used for unknown indication
     Dosage: 50 MG, QD
     Route: 065
  45. ESOMEPRAZOLE [Concomitant]
     Active Substance: ESOMEPRAZOLE
     Indication: Product used for unknown indication
     Dosage: 20 MG, QD (1 X 20MG, ONCE DAILY, MORNING)
     Route: 065
  46. DICLOFENAC [Concomitant]
     Active Substance: DICLOFENAC
     Indication: Product used for unknown indication
     Dosage: 75 MG, BID (1 X 75MG, TWICE DAILY, MORNING)
     Route: 065
  47. MAPROTILINE [MAPROTILINE HYDROCHLORIDE] [Concomitant]
     Indication: Product used for unknown indication
     Dosage: UNK
     Route: 065
  48. DICLOFENAC [Concomitant]
     Active Substance: DICLOFENAC
     Indication: Product used for unknown indication
     Dosage: 75 MG, TID, AS NEEDED 1-2 PER WEEK, TWICE (MORNING,EVENING)
     Route: 065

REACTIONS (17)
  - Movement disorder [Unknown]
  - Bacterial infection [Unknown]
  - Pain in extremity [Unknown]
  - Cataract [Unknown]
  - Bone density decreased [Unknown]
  - Osteoporosis [Unknown]
  - Musculoskeletal discomfort [Unknown]
  - Visual impairment [Unknown]
  - Osteoarthritis [Unknown]
  - Pathological fracture [Unknown]
  - Arthralgia [Unknown]
  - Microcytic anaemia [Recovered/Resolved]
  - Vitamin D decreased [Recovering/Resolving]
  - Vitamin B12 decreased [Recovered/Resolved]
  - Fracture [Unknown]
  - Fall [Unknown]
  - Iron deficiency [Recovered/Resolved]

NARRATIVE: CASE EVENT DATE: 20050101
